FAERS Safety Report 23282305 (Version 1)
Quarter: 2023Q4

REPORT INFORMATION
  Report Type: Spontaneous
  Country: GB (occurrence: GB)
  Receive Date: 20231211
  Receipt Date: 20231211
  Transmission Date: 20240109
  Serious: Yes (Other)
  Sender: FDA-Public Use
  Company Number: None

PATIENT
  Age: 66 Year
  Sex: Female
  Weight: 69.854 kg

DRUGS (9)
  1. ATORVASTATIN [Suspect]
     Active Substance: ATORVASTATIN
     Indication: Product used for unknown indication
     Dosage: 1 DOSAGE FORM
     Route: 065
  2. LOSARTAN [Suspect]
     Active Substance: LOSARTAN
     Indication: Product used for unknown indication
     Dosage: 1 DOSAGE FORM
     Route: 065
     Dates: start: 20231101
  3. FAMTOZINAMERAN\TOZINAMERAN [Concomitant]
     Active Substance: FAMTOZINAMERAN\TOZINAMERAN
     Indication: COVID-19 immunisation
     Dosage: 0.3 MILLILITER (QUALIFIER VALUE)
     Route: 030
     Dates: start: 20230927, end: 20230927
  4. EPIPEN [Concomitant]
     Active Substance: EPINEPHRINE
     Indication: Product used for unknown indication
     Dosage: 300 MCG/0.3ML. ONE DOSE REPEAT AFTER 5-15 MINUTES IF NEEDED
     Route: 065
     Dates: start: 20231013
  5. INDAPAMIDE [Concomitant]
     Active Substance: INDAPAMIDE
     Dosage: 1 DOSAGE FORM, AM (EACH MORNING)
     Route: 065
     Dates: start: 20231128
  6. MICONAZOLE [Concomitant]
     Active Substance: MICONAZOLE
     Dosage: 2.5 MILLILITER, QD (AFTER MEALS)
     Route: 065
     Dates: start: 20231107
  7. NYSTATIN [Concomitant]
     Active Substance: NYSTATIN
     Dosage: 1 MILLILITER (INTO MOUTH)
     Route: 048
     Dates: start: 20231013, end: 20231111
  8. SODIUM ALGINATE [Concomitant]
     Active Substance: SODIUM ALGINATE
     Dosage: 500 MILLIGRAM, BID (ONE OR TWO TO BE CHEWED AFTER MEALS AND AT BEDTIME)
     Route: 065
     Dates: start: 20231124
  9. POTASSIUM BICARBONATE [Concomitant]
     Active Substance: POTASSIUM BICARBONATE
     Dosage: 100 MILLIGRAM, BID (ONE OR TWO TO BE CHEWED AFTER MEALS AND AT BEDTIME)
     Route: 065
     Dates: start: 20231124

REACTIONS (1)
  - Angioedema [Recovering/Resolving]
